FAERS Safety Report 7531922-0 (Version None)
Quarter: 2011Q2

REPORT INFORMATION
  Report Type: 
  Country: None (occurrence: None)
  Receive Date: 20110608
  Receipt Date: 20110601
  Transmission Date: 20111010
  Serious: Yes (Other)
  Sender: FDA-Public Use
  Company Number: ES-JNJFOC-20110602073

PATIENT
  Age: 36 Year
  Sex: Male

DRUGS (7)
  1. TOPAMAX [Suspect]
     Route: 048
  2. TOPAMAX [Suspect]
     Indication: PRODUCT USED FOR UNKNOWN INDICATION
     Route: 048
  3. TOPAMAX [Suspect]
     Route: 048
  4. VENTOLIN HFA [Concomitant]
     Route: 065
  5. MOTILIUM [Concomitant]
     Route: 065
  6. ABILIFY [Concomitant]
     Route: 065
  7. ACETAMINOPHEN [Concomitant]
     Route: 065

REACTIONS (2)
  - SYNCOPE [None]
  - HYPOAESTHESIA [None]
